FAERS Safety Report 4760539-6 (Version None)
Quarter: 2005Q3

REPORT INFORMATION
  Report Type: 
  Country: None (occurrence: None)
  Receive Date: 20050902
  Receipt Date: 20050825
  Transmission Date: 20060218
  Serious: Yes (Hospitalization, Disabling)
  Sender: FDA-Public Use
  Company Number: US-MERCK-0508USA04217

PATIENT
  Sex: Female

DRUGS (4)
  1. VIOXX [Suspect]
     Indication: HEADACHE
     Route: 048
  2. VIOXX [Suspect]
     Indication: ARTHRALGIA
     Route: 048
  3. PREMARIN [Concomitant]
     Route: 065
  4. BEXTRA [Suspect]
     Route: 065

REACTIONS (1)
  - VENTRICULAR TACHYCARDIA [None]
